FAERS Safety Report 11502985 (Version 3)
Quarter: 2015Q4

REPORT INFORMATION
  Report Type: Spontaneous
  Country: US (occurrence: US)
  Receive Date: 20150914
  Receipt Date: 20151029
  Transmission Date: 20160304
  Serious: Yes (Other)
  Sender: FDA-Public Use
  Company Number: US-ASTELLAS-2015US023235

PATIENT
  Age: 83 Year
  Sex: Male

DRUGS (1)
  1. XTANDI [Suspect]
     Active Substance: ENZALUTAMIDE
     Indication: PROSTATE CANCER
     Route: 048
     Dates: start: 20150617, end: 201510

REACTIONS (6)
  - Lymphadenopathy [Recovering/Resolving]
  - Peripheral swelling [Not Recovered/Not Resolved]
  - Blood calcium decreased [Unknown]
  - Mass [Recovered/Resolved]
  - Anaemia [Recovering/Resolving]
  - Squamous cell carcinoma [Unknown]

NARRATIVE: CASE EVENT DATE: 20150619
